FAERS Safety Report 5814296-2 (Version None)
Quarter: 2008Q3

REPORT INFORMATION
  Report Type: 
  Country: None (occurrence: None)
  Receive Date: 20080717
  Receipt Date: 20080709
  Transmission Date: 20090109
  Serious: Yes (Hospitalization)
  Sender: FDA-Public Use
  Company Number: US-ELI_LILLY_AND_COMPANY-US200807001703

PATIENT
  Sex: Female

DRUGS (9)
  1. BYETTA [Suspect]
     Indication: TYPE 2 DIABETES MELLITUS
     Dosage: 5 UG, 2/D
     Route: 058
     Dates: start: 20050801, end: 20060801
  2. BYETTA [Suspect]
     Dosage: 10 UG, 2/D
     Route: 058
     Dates: start: 20060801
  3. METFORMIN HCL [Concomitant]
     Indication: TYPE 2 DIABETES MELLITUS
     Dosage: 2000 MG, EACH MORNING
  4. SYNTHROID [Concomitant]
     Indication: THYROID DISORDER
     Dosage: 50 UG, DAILY (1/D)
  5. CLARINEX [Concomitant]
     Indication: MULTIPLE ALLERGIES
     Dosage: 10 MG, DAILY (1/D)
  6. LIPITOR [Concomitant]
     Indication: BLOOD CHOLESTEROL
  7. GABAPENTIN [Concomitant]
     Indication: NEUROPATHY PERIPHERAL
     Dosage: 300 MG, 4/D
  8. OSCAL 500-D [Concomitant]
     Dosage: UNK, DAILY (1/D)
  9. MULTI-VITAMIN [Concomitant]
     Dosage: UNK, DAILY (1/D)

REACTIONS (3)
  - ABDOMINAL PAIN [None]
  - ABDOMINAL TENDERNESS [None]
  - INTERNAL HERNIA [None]
